FAERS Safety Report 4311267-2 (Version None)
Quarter: 2004Q1

REPORT INFORMATION
  Report Type: 
  Country: None (occurrence: None)
  Receive Date: 20040302
  Receipt Date: 20031113
  Transmission Date: 20041129
  Serious: Yes (Hospitalization)
  Sender: FDA-Public Use
  Company Number: BDI-005601

PATIENT
  Age: 53 Year
  Sex: Female
  Weight: 72 kg

DRUGS (1)
  1. ISOVUE-300 [Suspect]
     Indication: UROGRAPHY
     Dosage: 50 ML ONCE IV
     Dates: start: 20031016, end: 20031016

REACTIONS (1)
  - ANAPHYLACTOID REACTION [None]
